FAERS Safety Report 9838573 (Version 2)
Quarter: 2014Q4

REPORT INFORMATION
  Report Type: Spontaneous
  Country: US (occurrence: None)
  Receive Date: 20131206
  Receipt Date: 20141209
  Transmission Date: 20150529
  Serious: Yes (Hospitalization)
  Sender: FDA-Public Use
  Company Number: 384811

PATIENT
  Age: 70 Year
  Sex: Male

DRUGS (7)
  1. ARICEPT [Concomitant]
     Active Substance: DONEPEZIL HYDROCHLORIDE
  2. ATENOLOL (ATENOLOL) [Concomitant]
     Active Substance: ATENOLOL
  3. KETOCONAZOLE (KETOCONAZOLE) [Concomitant]
     Active Substance: KETOCONAZOLE
  4. VITAMIN D /00107901/ (ERGOCALCIFEROL) [Concomitant]
  5. DOXAZOSIN [Concomitant]
     Active Substance: DOXAZOSIN\DOXAZOSIN MESYLATE
  6. NOVOLOG [Suspect]
     Active Substance: INSULIN ASPART
     Indication: DIABETES MELLITUS
     Dosage: ~70 U QD VIA INSULIN PUMP, SUBCUTAN,.-PUMP
     Route: 058
     Dates: start: 20120926
  7. KLONOPIN [Concomitant]
     Active Substance: CLONAZEPAM

REACTIONS (4)
  - Diabetic ketoacidosis [None]
  - Product quality issue [None]
  - Drug ineffective [None]
  - Blood glucose increased [None]

NARRATIVE: CASE EVENT DATE: 20130728
